FAERS Safety Report 13767180 (Version 1)
Quarter: 2017Q3

REPORT INFORMATION
  Report Type: Spontaneous
  Country: US (occurrence: US)
  Receive Date: 20170719
  Receipt Date: 20170719
  Transmission Date: 20171127
  Serious: Yes (Hospitalization, Other)
  Sender: FDA-Public Use
  Company Number: US-GLAXOSMITHKLINE-US2017110765

PATIENT
  Age: 35 Year
  Sex: Female

DRUGS (3)
  1. BENLYSTA [Suspect]
     Active Substance: BELIMUMAB
     Indication: SYSTEMIC LUPUS ERYTHEMATOSUS
     Dosage: 470 MG, CYC
     Dates: start: 20170210
  2. DAPTOMYCIN. [Concomitant]
     Active Substance: DAPTOMYCIN
  3. PREDNISONE. [Concomitant]
     Active Substance: PREDNISONE

REACTIONS (2)
  - Therapy cessation [Unknown]
  - Sepsis [Unknown]

NARRATIVE: CASE EVENT DATE: 20170609
